FAERS Safety Report 8557996-6 (Version None)
Quarter: 2012Q3

REPORT INFORMATION
  Report Type: 
  Country: None (occurrence: None)
  Receive Date: 20120720
  Receipt Date: 20120710
  Transmission Date: 20120928
  Serious: Yes (Disabling)
  Sender: FDA-Public Use
  Company Number: AUR-APL-2012-02267

PATIENT
  Age: 46 Year
  Sex: Male
  Weight: 118 kg

DRUGS (4)
  1. SIMVASTATIN [Concomitant]
  2. LISINOPRIL AND HYDROCHLOROTHIAZIDE [Suspect]
     Indication: CARDIAC DISORDER
     Dosage: 10/12.5 MG (1 D), UNK
     Dates: start: 20080101, end: 20110101
  3. ZOLOFT [Suspect]
     Indication: DEPRESSION
     Dosage: 50 MG, 1 D), UNK; 100 MG, 1 D), UNK
     Dates: start: 20110401
  4. ZOLOFT [Suspect]
     Indication: DEPRESSION
     Dosage: 50 MG, 1 D), UNK; 100 MG, 1 D), UNK
     Dates: start: 20120401

REACTIONS (11)
  - DIZZINESS [None]
  - NAUSEA [None]
  - ARNOLD-CHIARI MALFORMATION [None]
  - MUSCLE ENZYME INCREASED [None]
  - DRUG INEFFECTIVE [None]
  - BLOOD SODIUM ABNORMAL [None]
  - HEPATIC ENZYME INCREASED [None]
  - CONDITION AGGRAVATED [None]
  - MOTION SICKNESS [None]
  - HYPOTENSION [None]
  - DEPRESSION [None]
